FAERS Safety Report 25249144 (Version 2)
Quarter: 2025Q2

REPORT INFORMATION
  Report Type: Spontaneous
  Country: AU (occurrence: AU)
  Receive Date: 20250429
  Receipt Date: 20250506
  Transmission Date: 20250716
  Serious: Yes (Other)
  Sender: TERSERA THERAPEUTICS
  Company Number: AU-AstraZeneca-CH-00853648A

PATIENT

DRUGS (2)
  1. GOSERELIN [Suspect]
     Active Substance: GOSERELIN
     Indication: Prostate cancer
     Route: 065
  2. ZOLADEX [Suspect]
     Active Substance: GOSERELIN ACETATE
     Indication: Prostate cancer
     Route: 065

REACTIONS (3)
  - Joint dislocation [Unknown]
  - Hip fracture [Unknown]
  - Urinary incontinence [Recovering/Resolving]
